FAERS Safety Report 18392385 (Version 1)
Quarter: 2020Q4

REPORT INFORMATION
  Report Type: Spontaneous
  Country: US (occurrence: US)
  Receive Date: 20201016
  Receipt Date: 20201016
  Transmission Date: 20210114
  Serious: No
  Sender: FDA-Public Use
  Company Number: None

PATIENT
  Sex: Female

DRUGS (1)
  1. AMBRISENTAN 10MG [Suspect]
     Active Substance: AMBRISENTAN
     Route: 048

REACTIONS (6)
  - Decreased appetite [None]
  - Dyspnoea [None]
  - Throat tightness [None]
  - Swollen tongue [None]
  - Nasal congestion [None]
  - Pruritus [None]
